FAERS Safety Report 13898363 (Version 1)
Quarter: 2017Q3

REPORT INFORMATION
  Report Type: Spontaneous
  Country: US (occurrence: US)
  Receive Date: 20170823
  Receipt Date: 20170823
  Transmission Date: 20171127
  Serious: Yes (Other)
  Sender: FDA-Public Use
  Company Number: US-AMGEN-USASP2017123870

PATIENT
  Sex: Female

DRUGS (2)
  1. ENBREL [Suspect]
     Active Substance: ETANERCEPT
     Indication: PRODUCT USED FOR UNKNOWN INDICATION
     Dosage: UNK
     Route: 065
  2. METHOTREXATE. [Suspect]
     Active Substance: METHOTREXATE
     Indication: PRODUCT USED FOR UNKNOWN INDICATION
     Dosage: UNK
     Route: 065

REACTIONS (11)
  - Loss of personal independence in daily activities [Unknown]
  - Pain [Unknown]
  - Musculoskeletal stiffness [Unknown]
  - Synovitis [Unknown]
  - Hypophagia [Unknown]
  - Weight decreased [Unknown]
  - Liver function test increased [Unknown]
  - Fatigue [Unknown]
  - Tenderness [Unknown]
  - Joint swelling [Unknown]
  - Joint effusion [Unknown]
